FAERS Safety Report 16176523 (Version 1)
Quarter: 2019Q2

REPORT INFORMATION
  Report Type: Spontaneous
  Country: TR (occurrence: TR)
  Receive Date: 20190409
  Receipt Date: 20190409
  Transmission Date: 20190711
  Serious: Yes (Other)
  Sender: FDA-Public Use
  Company Number: TR-BAUSCH-BL-2019-010254

PATIENT
  Age: 33 Year
  Sex: Male

DRUGS (2)
  1. ZYLET [Suspect]
     Active Substance: LOTEPREDNOL ETABONATE\TOBRAMYCIN
     Indication: EYE INFECTION
     Route: 047
     Dates: start: 20190322, end: 20190402
  2. LOTEMAX [Suspect]
     Active Substance: LOTEPREDNOL ETABONATE
     Indication: EYE INFECTION
     Route: 047
     Dates: start: 20190322, end: 20190402

REACTIONS (2)
  - Dacryostenosis acquired [Recovering/Resolving]
  - Product use issue [Unknown]

NARRATIVE: CASE EVENT DATE: 20190322
